FAERS Safety Report 21461984 (Version 2)
Quarter: 2023Q1

REPORT INFORMATION
  Report Type: Spontaneous
  Country: AT (occurrence: AT)
  Receive Date: 20221015
  Receipt Date: 20230331
  Transmission Date: 20230417
  Serious: Yes (Hospitalization)
  Sender: FDA-Public Use
  Company Number: AT-AMGEN-AUTSP2022174004

PATIENT
  Age: 42 Year
  Sex: Male
  Weight: 97.3 kg

DRUGS (7)
  1. REPATHA [Suspect]
     Active Substance: EVOLOCUMAB
     Indication: Product used for unknown indication
     Dosage: 140 MILLIGRAM, Q2WK
     Route: 058
     Dates: start: 201803, end: 20211008
  2. PELACARSEN [Suspect]
     Active Substance: PELACARSEN
     Indication: Cardiovascular disorder
     Dosage: UNK
     Route: 058
     Dates: start: 20200928
  3. ASPIRIN [Concomitant]
     Active Substance: ASPIRIN
     Dosage: UNK
     Dates: start: 2017
  4. RAMIPRIL [Concomitant]
     Active Substance: RAMIPRIL
     Dosage: UNK
     Dates: start: 2017
  5. EZETIMIBE [Concomitant]
     Active Substance: EZETIMIBE
     Dosage: UNK
     Dates: start: 2017
  6. ALLEGRA [Concomitant]
     Active Substance: FEXOFENADINE HYDROCHLORIDE
     Dosage: UNK
     Dates: start: 202006
  7. ENOXAPARIN SODIUM [Concomitant]
     Active Substance: ENOXAPARIN SODIUM
     Indication: Thrombosis prophylaxis
     Dosage: UNK

REACTIONS (2)
  - Tendon rupture [Recovering/Resolving]
  - Goitre [Not Recovered/Not Resolved]

NARRATIVE: CASE EVENT DATE: 20180501
